FAERS Safety Report 17458936 (Version 1)
Quarter: 2020Q1

REPORT INFORMATION
  Report Type: Spontaneous
  Country: US (occurrence: US)
  Receive Date: 20200225
  Receipt Date: 20200225
  Transmission Date: 20200409
  Serious: No
  Sender: FDA-Public Use
  Company Number: US-IGSA-SR10009418

PATIENT
  Age: 76 Year
  Sex: Female
  Weight: 72 kg

DRUGS (11)
  1. SINGULAIR [Concomitant]
     Active Substance: MONTELUKAST SODIUM
  2. AZELASTINE. [Concomitant]
     Active Substance: AZELASTINE HYDROCHLORIDE
  3. CHOLESTYRAMINE. [Concomitant]
     Active Substance: CHOLESTYRAMINE
  4. PROLASTIN-C LIQUID [Suspect]
     Active Substance: .ALPHA.1-PROTEINASE INHIBITOR HUMAN
     Indication: ALPHA-1 ANTI-TRYPSIN DEFICIENCY
     Dosage: 4320 MG, Q.WK.
     Route: 042
     Dates: start: 20190622
  5. MAGNESIUM [Concomitant]
     Active Substance: MAGNESIUM
  6. MULTIVITAMIN                       /00097801/ [Concomitant]
     Active Substance: VITAMINS
  7. DICLOFENAC [Concomitant]
     Active Substance: DICLOFENAC
  8. ESTRADIOL. [Concomitant]
     Active Substance: ESTRADIOL
  9. ATORVASTATIN [Concomitant]
     Active Substance: ATORVASTATIN
  10. OMEPRAZOLE. [Concomitant]
     Active Substance: OMEPRAZOLE
  11. PROAIR HFA [Concomitant]
     Active Substance: ALBUTEROL SULFATE

REACTIONS (2)
  - Headache [Not Recovered/Not Resolved]
  - Fatigue [Not Recovered/Not Resolved]

NARRATIVE: CASE EVENT DATE: 20191001
